FAERS Safety Report 5195788-9 (Version None)
Quarter: 2006Q4

REPORT INFORMATION
  Report Type: 
  Country: None (occurrence: None)
  Receive Date: 20061227
  Receipt Date: 20061227
  Transmission Date: 20070319
  Serious: Yes (Hospitalization)
  Sender: FDA-Public Use
  Company Number: None

PATIENT
  Age: 34 Year
  Sex: Male
  Weight: 79 kg

DRUGS (1)
  1. GLEEVEC [Suspect]
     Indication: WALDENSTROM'S MACROGLOBULINAEMIA
     Dosage: 600MG PO QD
     Route: 048
     Dates: start: 20060925, end: 20061226

REACTIONS (1)
  - PNEUMONIA [None]
